FAERS Safety Report 11841696 (Version 1)
Quarter: 2015Q4

REPORT INFORMATION
  Report Type: Spontaneous
  Country: US (occurrence: US)
  Receive Date: 20151216
  Receipt Date: 20151216
  Transmission Date: 20160305
  Serious: No
  Sender: FDA-Public Use
  Company Number: US-RB-070830-14

PATIENT
  Age: 22 Year
  Sex: Male

DRUGS (1)
  1. DELSYM [Suspect]
     Active Substance: DEXTROMETHORPHAN
     Indication: PRODUCT USED FOR UNKNOWN INDICATION
     Dosage: . TOOK NORMAL DOSE  (AMOUNT NOT KNOWN); LAST USED THE PRODUCT ON 12-NOV-2014,FREQUENCY UNK
     Route: 065
     Dates: start: 20141112

REACTIONS (3)
  - Pruritus generalised [Unknown]
  - Swelling [Unknown]
  - Erythema [Unknown]

NARRATIVE: CASE EVENT DATE: 20141112
